FAERS Safety Report 8289241-3 (Version None)
Quarter: 2012Q2

REPORT INFORMATION
  Report Type: 
  Country: None (occurrence: None)
  Receive Date: 20120417
  Receipt Date: 20120411
  Transmission Date: 20120825
  Serious: Yes (Other)
  Sender: FDA-Public Use
  Company Number: PHHY2011CA099124

PATIENT
  Sex: Female

DRUGS (2)
  1. ZOLEDRONOC ACID [Suspect]
     Indication: OSTEOPOROSIS
     Dosage: 5 MG, UNK
     Route: 042
     Dates: start: 20110420
  2. ZOLEDRONOC ACID [Suspect]
     Dosage: 5 MG, UNK
     Route: 042
     Dates: start: 20120411

REACTIONS (8)
  - PANCREATITIS [None]
  - WEIGHT DECREASED [None]
  - FATIGUE [None]
  - NECK PAIN [None]
  - CHILLS [None]
  - PAIN IN EXTREMITY [None]
  - BACK PAIN [None]
  - ARTHRALGIA [None]
